FAERS Safety Report 5935913-2 (Version None)
Quarter: 2008Q4

REPORT INFORMATION
  Report Type: 
  Country: None (occurrence: None)
  Receive Date: 20081030
  Receipt Date: 20080603
  Transmission Date: 20090506
  Serious: No
  Sender: FDA-Public Use
  Company Number: A0730892A

PATIENT
  Age: 15 Year
  Sex: Male

DRUGS (2)
  1. IMITREX [Suspect]
     Indication: MIGRAINE
     Dates: start: 20070101
  2. IBUPROFEN [Concomitant]

REACTIONS (1)
  - ABDOMINAL PAIN UPPER [None]
